FAERS Safety Report 6029779-2 (Version None)
Quarter: 2009Q1

REPORT INFORMATION
  Report Type: 
  Country: None (occurrence: None)
  Receive Date: 20090106
  Receipt Date: 20090106
  Transmission Date: 20090719
  Serious: Yes (Life-Threatening)
  Sender: FDA-Public Use
  Company Number: None

PATIENT
  Age: 17 Year
  Sex: Male
  Weight: 104.7 kg

DRUGS (1)
  1. REMICADE [Suspect]
     Indication: CROHN'S DISEASE
     Dosage: 400 MG Q9 WEEKS IV
     Route: 042
     Dates: start: 20050801, end: 20080801

REACTIONS (2)
  - DRUG INTOLERANCE [None]
  - MYCOSIS FUNGOIDES [None]
